FAERS Safety Report 9213836 (Version 1)
Quarter: 2013Q2

REPORT INFORMATION
  Report Type: Spontaneous
  Country: US (occurrence: US)
  Receive Date: 20130405
  Receipt Date: 20130405
  Transmission Date: 20140414
  Serious: Yes (Other)
  Sender: FDA-Public Use
  Company Number: US-BRISTOL-MYERS SQUIBB COMPANY-18723502

PATIENT
  Age: 57 Year
  Sex: Female
  Weight: 51.7 kg

DRUGS (1)
  1. ORENCIA [Suspect]
     Indication: RHEUMATOID ARTHRITIS
     Route: 042
     Dates: start: 201209

REACTIONS (3)
  - Limb operation [Unknown]
  - Eczema [Unknown]
  - Dry mouth [Unknown]
